FAERS Safety Report 25866304 (Version 1)
Quarter: 2025Q3

REPORT INFORMATION
  Report Type: Spontaneous
  Country: US (occurrence: US)
  Receive Date: 20250930
  Receipt Date: 20250930
  Transmission Date: 20251020
  Serious: No
  Sender: SANOFI AVENTIS
  Company Number: US-SA-2025SA291697

PATIENT
  Sex: Female
  Weight: 119.55 kg

DRUGS (35)
  1. DUPIXENT [Suspect]
     Active Substance: DUPILUMAB
     Indication: Asthma
     Route: 058
  2. DUPIXENT [Suspect]
     Active Substance: DUPILUMAB
     Dosage: 300 MG, QOW
     Route: 058
  3. OXYGEN [Concomitant]
     Active Substance: OXYGEN
  4. CETIRIZINE [Concomitant]
     Active Substance: CETIRIZINE HYDROCHLORIDE
  5. PREGABALIN [Concomitant]
     Active Substance: PREGABALIN
  6. FAMOTIDINE [Concomitant]
     Active Substance: FAMOTIDINE
  7. MYRBETRIQ [Concomitant]
     Active Substance: MIRABEGRON
  8. TRIAMCINOLONE ACETONIDE [Concomitant]
     Active Substance: TRIAMCINOLONE ACETONIDE
  9. FUROSEMIDE [Concomitant]
     Active Substance: FUROSEMIDE
  10. POTASSIUM CHLORIDE [Concomitant]
     Active Substance: POTASSIUM CHLORIDE
  11. BUDESONIDE [Concomitant]
     Active Substance: BUDESONIDE
  12. CYCLOBENZAPRINE HYDROCHLORIDE [Concomitant]
     Active Substance: CYCLOBENZAPRINE HYDROCHLORIDE
  13. DOXEPIN HYDROCHLORIDE [Concomitant]
     Active Substance: DOXEPIN HYDROCHLORIDE
  14. EXEMESTANE [Concomitant]
     Active Substance: EXEMESTANE
  15. KETOTIFEN FUMARATE [Concomitant]
     Active Substance: KETOTIFEN FUMARATE
  16. VITAMIN D3 [Concomitant]
     Active Substance: CHOLECALCIFEROL
  17. OXYCODONE HYDROCHLORIDE [Concomitant]
     Active Substance: OXYCODONE HYDROCHLORIDE
  18. LOSARTAN POTASSIUM [Concomitant]
     Active Substance: LOSARTAN POTASSIUM
  19. NITROFURANTOIN MONO./MACRO. [Concomitant]
  20. ALBUTEROL SULFATE [Concomitant]
     Active Substance: ALBUTEROL SULFATE
  21. FLUTICASONE PROPIONATE [Concomitant]
     Active Substance: FLUTICASONE PROPIONATE
  22. CODEINE GUAIFENESIN [Concomitant]
     Active Substance: CODEINE PHOSPHATE\GUAIFENESIN
  23. LEVETIRACETAM [Concomitant]
     Active Substance: LEVETIRACETAM
  24. EPINEPHRINE [Concomitant]
     Active Substance: EPINEPHRINE
  25. PREDNISONE [Concomitant]
     Active Substance: PREDNISONE
  26. PIOGLITAZONE [Concomitant]
     Active Substance: PIOGLITAZONE
  27. ATORVASTATIN CALCIUM [Concomitant]
     Active Substance: ATORVASTATIN CALCIUM
  28. NYSTATIN [Concomitant]
     Active Substance: NYSTATIN
  29. TYLENOL [Concomitant]
     Active Substance: ACETAMINOPHEN
  30. OZEMPIC [Concomitant]
     Active Substance: SEMAGLUTIDE
  31. ESTRADIOL [Concomitant]
     Active Substance: ESTRADIOL
  32. ACETAMINOPHEN AND CODEINE [Concomitant]
     Active Substance: ACETAMINOPHEN\CODEINE PHOSPHATE
  33. GUAIFENESIN [Concomitant]
     Active Substance: GUAIFENESIN
  34. MONTELUKAST SODIUM [Concomitant]
     Active Substance: MONTELUKAST SODIUM
  35. METFORMIN [Concomitant]
     Active Substance: METFORMIN HYDROCHLORIDE

REACTIONS (1)
  - Injection site pain [Not Recovered/Not Resolved]
